FAERS Safety Report 5158255-4 (Version None)
Quarter: 2006Q4

REPORT INFORMATION
  Report Type: 
  Country: None (occurrence: None)
  Receive Date: 20061121
  Receipt Date: 20061121
  Transmission Date: 20070319
  Serious: Yes (Hospitalization)
  Sender: FDA-Public Use
  Company Number: None

PATIENT
  Age: 39 Year
  Sex: Male

DRUGS (1)
  1. ISOVUE-300 [Suspect]
     Indication: SCAN WITH CONTRAST
     Dosage: 100ML ONCE IV BOLUS
     Route: 040
     Dates: start: 20060531, end: 20060531

REACTIONS (5)
  - ANAPHYLACTIC REACTION [None]
  - CONTRAST MEDIA REACTION [None]
  - DIZZINESS [None]
  - HYPERHIDROSIS [None]
  - VOMITING [None]
